FAERS Safety Report 23851582 (Version 2)
Quarter: 2024Q2

REPORT INFORMATION
  Report Type: Report from Study
  Country: FR (occurrence: None)
  Receive Date: 20240514
  Receipt Date: 20240614
  Transmission Date: 20240716
  Serious: Yes (Other)
  Sender: FDA-Public Use
  Company Number: FR-CTRS-202400083

PATIENT
  Age: 17 Year
  Sex: Male

DRUGS (1)
  1. SIKLOS [Suspect]
     Active Substance: HYDROXYUREA
     Indication: Directional Doppler flow tests abnormal
     Route: 048
     Dates: start: 20180720

REACTIONS (1)
  - Hypogonadism male [Recovering/Resolving]

NARRATIVE: CASE EVENT DATE: 20221114
